FAERS Safety Report 20438624 (Version 1)
Quarter: 2022Q1

REPORT INFORMATION
  Report Type: Spontaneous
  Country: US (occurrence: None)
  Receive Date: 20220204
  Receipt Date: 20220204
  Transmission Date: 20220423
  Serious: No
  Sender: FDA-Public Use
  Company Number: None

PATIENT
  Age: 88 Year
  Sex: Male
  Weight: 79.38 kg

DRUGS (15)
  1. CAPECITABINE [Suspect]
     Active Substance: CAPECITABINE
     Dosage: FREQUENCY : TWICE A DAY;?
     Route: 048
  2. TUMS [Concomitant]
     Active Substance: CALCIUM CARBONATE
  3. VITAMIN C [Concomitant]
     Active Substance: ASCORBIC ACID
  4. METOPROLOL [Concomitant]
     Active Substance: METOPROLOL
  5. CREON [Concomitant]
     Active Substance: PANCRELIPASE AMYLASE\PANCRELIPASE LIPASE\PANCRELIPASE PROTEASE
  6. FUROSEMIDE [Concomitant]
     Active Substance: FUROSEMIDE
  7. OXALIPLATIN [Concomitant]
     Active Substance: OXALIPLATIN
  8. CRESTOR [Concomitant]
     Active Substance: ROSUVASTATIN CALCIUM
  9. VITAMINS [Concomitant]
     Active Substance: VITAMINS
  10. FINASTERIDE [Concomitant]
     Active Substance: FINASTERIDE
  11. VITAMIN D3 [Concomitant]
     Active Substance: CHOLECALCIFEROL
  12. TAMSULOSIN [Concomitant]
     Active Substance: TAMSULOSIN
  13. ELIQUIS [Concomitant]
     Active Substance: APIXABAN
  14. ASPIRIN [Concomitant]
     Active Substance: ASPIRIN
  15. ZOFRAN [Concomitant]
     Active Substance: ONDANSETRON HYDROCHLORIDE

REACTIONS (3)
  - Diarrhoea [None]
  - Blood potassium decreased [None]
  - Blood test abnormal [None]
